FAERS Safety Report 4529399-2 (Version None)
Quarter: 2004Q4

REPORT INFORMATION
  Report Type: 
  Country: None (occurrence: None)
  Receive Date: 20041215
  Receipt Date: 20041215
  Transmission Date: 20050328
  Serious: Yes (Other)
  Sender: FDA-Public Use
  Company Number: None

PATIENT
  Age: 69 Year
  Sex: Female
  Weight: 79.3795 kg

DRUGS (7)
  1. TARCEVA [Suspect]
     Indication: NON-SMALL CELL LUNG CANCER
     Dosage: ONE PO QD OU
     Route: 048
     Dates: start: 20041124
  2. PROPINE [Suspect]
     Indication: GLAUCOMA
     Dosage: ONE GTT OU QD
     Dates: start: 20040901
  3. XALATAN [Suspect]
  4. XANAX [Concomitant]
  5. ATENOLOL [Concomitant]
  6. IMODIUM A-D [Concomitant]
  7. LEVOXYL [Concomitant]

REACTIONS (5)
  - DRUG INEFFECTIVE [None]
  - DRUG INTERACTION [None]
  - ERYTHEMA [None]
  - PAIN OF SKIN [None]
  - SKIN IRRITATION [None]
